FAERS Safety Report 17322826 (Version 1)
Quarter: 2020Q1

REPORT INFORMATION
  Report Type: Spontaneous
  Country: US (occurrence: US)
  Receive Date: 20200127
  Receipt Date: 20200127
  Transmission Date: 20200409
  Serious: No
  Sender: FDA-Public Use
  Company Number: US-ACORDA-ACO_161342_2019

PATIENT
  Sex: Female

DRUGS (2)
  1. AMPYRA [Suspect]
     Active Substance: DALFAMPRIDINE
     Dosage: 2 PILLS A DAY  (Q12 H)
     Dates: start: 201909
  2. AMPYRA [Suspect]
     Active Substance: DALFAMPRIDINE
     Indication: PRODUCT USED FOR UNKNOWN INDICATION
     Dosage: 1 PILL A DAY
     Route: 048
     Dates: start: 201909, end: 201909

REACTIONS (3)
  - Paraesthesia [Unknown]
  - Asthenia [Unknown]
  - Drug ineffective [Unknown]
